FAERS Safety Report 17194101 (Version 1)
Quarter: 2019Q4

REPORT INFORMATION
  Report Type: Report from Study
  Country: US (occurrence: US)
  Receive Date: 20191224
  Receipt Date: 20191224
  Transmission Date: 20200122
  Serious: Yes (Death, Hospitalization)
  Sender: FDA-Public Use
  Company Number: US-ZYDUS-044931

PATIENT
  Age: 18 Month
  Sex: Male

DRUGS (1)
  1. DEXTROAMPHETAMINE. [Suspect]
     Active Substance: DEXTROAMPHETAMINE
     Indication: PRODUCT USED FOR UNKNOWN INDICATION
     Route: 065

REACTIONS (3)
  - Agitation [Unknown]
  - Tachycardia [Unknown]
  - Toxicity to various agents [Fatal]
